FAERS Safety Report 5315692-2 (Version None)
Quarter: 2007Q2

REPORT INFORMATION
  Report Type: 
  Country: None (occurrence: None)
  Receive Date: 20070501
  Receipt Date: 20070501
  Transmission Date: 20071010
  Serious: No
  Sender: FDA-Public Use
  Company Number: None

PATIENT
  Age: 74 Year
  Sex: Male
  Weight: 68.0396 kg

DRUGS (2)
  1. ISOVUE-128 [Suspect]
  2. OMNIPAQUE 140 [Suspect]

REACTIONS (11)
  - ANGINA PECTORIS [None]
  - ARTHRITIS [None]
  - BLOOD PRESSURE INCREASED [None]
  - CHEST DISCOMFORT [None]
  - CHILLS [None]
  - DECREASED ACTIVITY [None]
  - HYPERHIDROSIS [None]
  - INSOMNIA [None]
  - JOINT SWELLING [None]
  - PAIN [None]
  - PAIN IN EXTREMITY [None]
